FAERS Safety Report 4662695-7 (Version None)
Quarter: 2005Q2

REPORT INFORMATION
  Report Type: 
  Country: None (occurrence: None)
  Receive Date: 20050516
  Receipt Date: 20050510
  Transmission Date: 20051028
  Serious: Yes (Other)
  Sender: FDA-Public Use
  Company Number: US-GLAXOSMITHKLINE-A0558142A

PATIENT
  Age: 52 Year
  Sex: Male

DRUGS (5)
  1. ADVAIR DISKUS 100/50 [Suspect]
     Indication: ASTHMA
     Dosage: 1PUFF TWICE PER DAY
     Route: 055
     Dates: start: 20010601
  2. SINGULAIR [Concomitant]
  3. NASONEX [Concomitant]
  4. ALBUTEROL [Concomitant]
  5. TEGRETOL [Concomitant]

REACTIONS (1)
  - LUNG NEOPLASM MALIGNANT [None]
